FAERS Safety Report 9052891 (Version 2)
Quarter: 2013Q2

REPORT INFORMATION
  Report Type: Spontaneous
  Country: US (occurrence: US)
  Receive Date: 20130207
  Receipt Date: 20130513
  Transmission Date: 20140414
  Serious: No
  Sender: FDA-Public Use
  Company Number: US-ASTRAZENECA-2013SE07237

PATIENT
  Age: 53 Year
  Sex: Female
  Weight: 68.9 kg

DRUGS (16)
  1. TOPROL XL [Suspect]
     Indication: HYPERTENSION
     Route: 048
     Dates: start: 1993, end: 2006
  2. TOPROL XL [Suspect]
     Indication: BLOOD PRESSURE
     Route: 048
     Dates: start: 1993, end: 2006
  3. TOPROL XL [Suspect]
     Indication: HYPERTENSION
     Route: 048
     Dates: start: 2006, end: 2006
  4. TOPROL XL [Suspect]
     Indication: BLOOD PRESSURE
     Route: 048
     Dates: start: 2006, end: 2006
  5. TOPROL XL [Suspect]
     Indication: HYPERTENSION
     Route: 048
     Dates: start: 2006, end: 2013
  6. TOPROL XL [Suspect]
     Indication: BLOOD PRESSURE
     Route: 048
     Dates: start: 2006, end: 2013
  7. TOPROL XL [Suspect]
     Indication: HYPERTENSION
     Route: 048
     Dates: start: 2013
  8. TOPROL XL [Suspect]
     Indication: BLOOD PRESSURE
     Route: 048
     Dates: start: 2013
  9. TOPROL XL [Suspect]
     Indication: HYPERTENSION
     Route: 048
  10. TOPROL XL [Suspect]
     Indication: BLOOD PRESSURE
     Route: 048
  11. TOPROL XL [Suspect]
     Indication: HYPERTENSION
     Route: 048
  12. TOPROL XL [Suspect]
     Indication: BLOOD PRESSURE
     Route: 048
  13. GABAPENTIN [Concomitant]
     Indication: NEUROPATHY PERIPHERAL
  14. BABY ASPIRIN [Concomitant]
  15. FISH OIL [Concomitant]
  16. VITAMINS [Concomitant]

REACTIONS (8)
  - Neuropathy peripheral [Not Recovered/Not Resolved]
  - Hypertension [Not Recovered/Not Resolved]
  - Heart rate increased [Recovered/Resolved]
  - Migraine [Recovered/Resolved]
  - Sleep disorder [Recovered/Resolved]
  - Headache [Not Recovered/Not Resolved]
  - Drug ineffective [Not Recovered/Not Resolved]
  - Therapeutic response unexpected [Unknown]
